FAERS Safety Report 25401482 (Version 1)
Quarter: 2025Q2

REPORT INFORMATION
  Report Type: Spontaneous
  Country: BR (occurrence: BR)
  Receive Date: 20250605
  Receipt Date: 20250605
  Transmission Date: 20250717
  Serious: Yes (Hospitalization)
  Sender: BOEHRINGER INGELHEIM
  Company Number: BR-Komodo Health-a23aa0000078GefAAE

PATIENT
  Age: 64 Year
  Sex: Male
  Weight: 77 kg

DRUGS (4)
  1. EMPAGLIFLOZIN\METFORMIN HYDROCHLORIDE [Suspect]
     Active Substance: EMPAGLIFLOZIN\METFORMIN HYDROCHLORIDE
     Indication: Type 2 diabetes mellitus
     Dosage: FORM STRENGTH:?12.5 MILLIGRAMS/850 MILLIGRAMS.?1 TABLET IN THE MORNING AND ONE IN THE EVENING.
     Dates: start: 2015
  2. EMPAGLIFLOZIN\METFORMIN HYDROCHLORIDE [Suspect]
     Active Substance: EMPAGLIFLOZIN\METFORMIN HYDROCHLORIDE
  3. JARDIANCE [Suspect]
     Active Substance: EMPAGLIFLOZIN
     Indication: Diabetes mellitus
  4. METFORMIN HYDROCHLORIDE [Suspect]
     Active Substance: METFORMIN HYDROCHLORIDE
     Indication: Diabetes mellitus

REACTIONS (10)
  - Cholelithiasis [Recovered/Resolved]
  - Gallbladder hypofunction [Recovered/Resolved]
  - Blood cholesterol increased [Unknown]
  - Product dispensing error [Unknown]
  - Pruritus [Recovered/Resolved]
  - Blood glucose abnormal [Unknown]
  - Rash [Recovered/Resolved]
  - Diarrhoea [Recovered/Resolved]
  - Diarrhoea [Recovered/Resolved]
  - Diarrhoea [Not Recovered/Not Resolved]

NARRATIVE: CASE EVENT DATE: 20200101
